FAERS Safety Report 9426950 (Version 2)
Quarter: 2013Q4

REPORT INFORMATION
  Report Type: Spontaneous
  Country: FR (occurrence: FR)
  Receive Date: 20130730
  Receipt Date: 20131210
  Transmission Date: 20140711
  Serious: Yes (Other)
  Sender: FDA-Public Use
  Company Number: FR-ASTRAZENECA-2013SE55931

PATIENT
  Age: 16475 Day
  Sex: Female

DRUGS (4)
  1. INEXIUM [Suspect]
     Route: 048
  2. NORVIR [Suspect]
     Indication: HIV INFECTION
     Dates: start: 20120414
  3. PREZISTA [Suspect]
     Indication: HIV INFECTION
     Dates: start: 20120414
  4. TRUVADA [Suspect]
     Indication: HIV INFECTION
     Dates: start: 20120414

REACTIONS (1)
  - Virologic failure [Recovered/Resolved]
